FAERS Safety Report 9731963 (Version 2)
Quarter: 2013Q4

REPORT INFORMATION
  Report Type: Spontaneous
  Country: JP (occurrence: JP)
  Receive Date: 20131205
  Receipt Date: 20131223
  Transmission Date: 20140711
  Serious: Yes (Death)
  Sender: FDA-Public Use
  Company Number: JP-BAYER-2013-145891

PATIENT
  Age: 20 Year
  Sex: Female
  Weight: 42 kg

DRUGS (3)
  1. YAZ [Suspect]
     Indication: DYSMENORRHOEA
     Dosage: 1 DF, QD
     Route: 048
     Dates: start: 20130620
  2. YAZ [Suspect]
     Indication: PREMENSTRUAL SYNDROME
  3. DEPAS [Concomitant]
     Indication: EATING DISORDER

REACTIONS (3)
  - Toxicity to various agents [Fatal]
  - Metrorrhagia [Unknown]
  - Abdominal pain lower [None]
